FAERS Safety Report 16548425 (Version 3)
Quarter: 2019Q4

REPORT INFORMATION
  Report Type: Spontaneous
  Country: US (occurrence: US)
  Receive Date: 20190709
  Receipt Date: 20191212
  Transmission Date: 20200122
  Serious: Yes (Other)
  Sender: FDA-Public Use
  Company Number: US-SA-2019SA184431

PATIENT
  Age: 49 Year
  Sex: Female
  Weight: 79 kg

DRUGS (49)
  1. IBUPROFEN. [Concomitant]
     Active Substance: IBUPROFEN
     Dosage: UNK
     Dates: start: 200001
  2. TAMIFLU [Concomitant]
     Active Substance: OSELTAMIVIR PHOSPHATE
     Dosage: UNK
     Dates: start: 200001
  3. AVIANE [Concomitant]
     Active Substance: ETHINYL ESTRADIOL\LEVONORGESTREL
     Dosage: UNK
     Dates: start: 200001
  4. TAXOTERE [Suspect]
     Active Substance: DOCETAXEL
     Dosage: 140 MG, Q3W
     Route: 042
     Dates: start: 20161220, end: 20161220
  5. ATORVASTATIN [Concomitant]
     Active Substance: ATORVASTATIN
  6. LIDOCAINE. [Concomitant]
     Active Substance: LIDOCAINE
  7. LISINOPRIL. [Concomitant]
     Active Substance: LISINOPRIL
     Dosage: UNK
     Dates: start: 200001
  8. ONDANSETRON [Concomitant]
     Active Substance: ONDANSETRON
     Dosage: UNK
     Dates: start: 200001
  9. OXYBUTIN [Concomitant]
     Active Substance: OXYBUTYNIN
     Dosage: UNK
     Dates: start: 200001
  10. AZITHROMYCIN ANHYDROUS. [Concomitant]
     Active Substance: AZITHROMYCIN ANHYDROUS
     Dosage: UNK
     Dates: start: 200001
  11. CLOTRIMAZOLE. [Concomitant]
     Active Substance: CLOTRIMAZOLE
     Dosage: UNK
     Dates: start: 200001
  12. CYCLOBENZAPRIN [Concomitant]
     Active Substance: CYCLOBENZAPRINE
     Dosage: UNK
     Dates: start: 200001
  13. CHERATUSSIN [Concomitant]
     Active Substance: AMMONIUM CHLORIDE\DEXTROMETHORPHAN\SODIUM CITRATE
  14. LEVOCETIRIZINE [Concomitant]
     Active Substance: LEVOCETIRIZINE
     Dosage: UNK
     Dates: start: 200001
  15. VIVOTIF [Concomitant]
     Active Substance: SALMONELLA TYPHI TY21A LIVE ANTIGEN
     Dosage: UNK
     Dates: start: 200001
  16. PROMETHAZINE [Concomitant]
     Active Substance: PROMETHAZINE HYDROCHLORIDE
     Dosage: UNK
     Dates: start: 200001
  17. PARAPLATIN [Concomitant]
     Active Substance: CARBOPLATIN
     Indication: TRIPLE NEGATIVE BREAST CANCER
     Dosage: UNK UNK, UNK
  18. AMOXICILLIN/CLAVULANIC ACID [Concomitant]
     Active Substance: AMOXICILLIN\CLAVULANIC ACID
     Dosage: UNK
     Dates: start: 200001
  19. OMEPRAZOLE. [Concomitant]
     Active Substance: OMEPRAZOLE
     Dosage: UNK
     Dates: start: 200001
  20. LORATADINE. [Concomitant]
     Active Substance: LORATADINE
     Dosage: UNK
     Dates: start: 200001
  21. TRIAMCINOLONE [Concomitant]
     Active Substance: TRIAMCINOLONE
     Dosage: UNK
     Dates: start: 200001
  22. PATANOL [Concomitant]
     Active Substance: OLOPATADINE HYDROCHLORIDE
     Dosage: UNK
     Dates: start: 200001
  23. FEXOFENADINE [Concomitant]
     Active Substance: FEXOFENADINE HYDROCHLORIDE
     Dosage: UNK
     Dates: start: 200001
  24. LORTAB [LORATADINE] [Concomitant]
     Active Substance: LORATADINE
  25. TRAMADOL. [Concomitant]
     Active Substance: TRAMADOL
     Dosage: UNK UNK, UNK
     Route: 065
     Dates: start: 200001
  26. PHENTERMINE. [Concomitant]
     Active Substance: PHENTERMINE
     Dosage: UNK
     Dates: start: 200001
  27. ESCITALOPRAM [Concomitant]
     Active Substance: ESCITALOPRAM OXALATE
     Dosage: UNK
     Dates: start: 200001
  28. METHYLPRED [Concomitant]
     Active Substance: METHYLPREDNISOLONE
     Dosage: UNK
     Dates: start: 200001
  29. MOMETASONE [Concomitant]
     Active Substance: MOMETASONE
     Dosage: UNK
     Dates: start: 200001
  30. BENZONATATE. [Concomitant]
     Active Substance: BENZONATATE
     Dosage: UNK
     Dates: start: 200001
  31. TAXOTERE [Suspect]
     Active Substance: DOCETAXEL
     Indication: TRIPLE NEGATIVE BREAST CANCER
     Dosage: 140 MG, Q3W
     Route: 042
     Dates: start: 20161018, end: 20161018
  32. PRILOCAINE [Concomitant]
     Active Substance: PRILOCAINE
     Dosage: UNK UNK, UNK
  33. LINZESS [Concomitant]
     Active Substance: LINACLOTIDE
     Dosage: UNK
     Dates: start: 200001
  34. NAPROXEN. [Concomitant]
     Active Substance: NAPROXEN
     Dosage: UNK
     Dates: start: 200001
  35. SULFAMETH/TRIMETH [Concomitant]
     Active Substance: SULFAMETHOXAZOLE\TRIMETHOPRIM
     Dosage: UNK
     Dates: start: 200001
  36. DEXAMETHASONE. [Concomitant]
     Active Substance: DEXAMETHASONE
     Dosage: UNK
     Dates: start: 200001
  37. PANTOPRAZOLE [Concomitant]
     Active Substance: PANTOPRAZOLE
     Dosage: UNK
     Dates: start: 200001
  38. FLUTICASONE. [Concomitant]
     Active Substance: FLUTICASONE
     Dosage: UNK
     Dates: start: 200001
  39. MONTELUKAST [Concomitant]
     Active Substance: MONTELUKAST SODIUM
     Dosage: UNK
     Dates: start: 200001
  40. NEOSAR [Concomitant]
     Active Substance: CYCLOPHOSPHAMIDE
     Indication: TRIPLE NEGATIVE BREAST CANCER
     Dosage: UNK UNK, UNK
  41. CEFDINIR. [Concomitant]
     Active Substance: CEFDINIR
     Dosage: UNK
     Dates: start: 200001
  42. OXYCODONE AND ACETAMINOPHEN [Concomitant]
     Active Substance: ACETAMINOPHEN\OXYCODONE HYDROCHLORIDE
     Dosage: UNK
     Dates: start: 200001
  43. RANITIDINE. [Concomitant]
     Active Substance: RANITIDINE
     Dosage: UNK
     Dates: start: 200001
  44. MEFLOQUINE [Concomitant]
     Active Substance: MEFLOQUINE
     Dosage: UNK
     Dates: start: 200001
  45. ADRIAMYCIN [Concomitant]
     Active Substance: DOXORUBICIN HYDROCHLORIDE
     Indication: TRIPLE NEGATIVE BREAST CANCER
  46. METFORMIN [Concomitant]
     Active Substance: METFORMIN HYDROCHLORIDE
  47. TERBINAFINE. [Concomitant]
     Active Substance: TERBINAFINE
     Dosage: UNK
     Dates: start: 200001
  48. DOXYCYCLINE. [Concomitant]
     Active Substance: DOXYCYCLINE
     Dosage: UNK
     Dates: start: 200001
  49. MELOXICAM. [Concomitant]
     Active Substance: MELOXICAM
     Dosage: UNK
     Dates: start: 200001

REACTIONS (1)
  - Alopecia [Recovering/Resolving]

NARRATIVE: CASE EVENT DATE: 20161018
